FAERS Safety Report 6678048-6 (Version None)
Quarter: 2010Q2

REPORT INFORMATION
  Report Type: 
  Country: None (occurrence: None)
  Receive Date: 20100412
  Receipt Date: 20100330
  Transmission Date: 20101027
  Serious: Yes (Hospitalization)
  Sender: FDA-Public Use
  Company Number: PHHY2010US20376

PATIENT
  Sex: Male

DRUGS (9)
  1. ZOMETA [Suspect]
     Dosage: 4 MG INFUSION
     Dates: start: 20100310
  2. LISINOPRIL [Concomitant]
     Dosage: 20 MG
  3. WELCHOL [Concomitant]
  4. ZOLADEX [Concomitant]
  5. VITAMIN D [Concomitant]
     Dosage: 2000 U, UNK
  6. CALCIUM [Concomitant]
  7. FISH OIL [Concomitant]
  8. MULTI-VITAMIN [Concomitant]
  9. TURMERIC [Concomitant]

REACTIONS (6)
  - BACTERIAL INFECTION [None]
  - BLOOD CALCIUM DECREASED [None]
  - BLOOD PHOSPHORUS DECREASED [None]
  - DEVICE RELATED INFECTION [None]
  - ELECTROLYTE IMBALANCE [None]
  - PYREXIA [None]
